FAERS Safety Report 4913059-X (Version None)
Quarter: 2006Q1

REPORT INFORMATION
  Report Type: 
  Country: None (occurrence: None)
  Receive Date: 20060210
  Receipt Date: 20060202
  Transmission Date: 20060701
  Serious: Yes (Other)
  Sender: FDA-Public Use
  Company Number: 2006017099

PATIENT
  Age: 27 Year
  Sex: Female
  Weight: 90.7194 kg

DRUGS (1)
  1. SUDAFED PE SINUS HEADACHE CAPLET (ACETAMINOPHEN, PHENYLEPHRINE HYDROCH [Suspect]
     Indication: NASAL CONGESTION
     Dosage: 2 CAPLETS ONCE, ORAL
     Route: 048
     Dates: start: 20060202, end: 20060202

REACTIONS (2)
  - DYSPNOEA [None]
  - PHARYNGEAL OEDEMA [None]
